FAERS Safety Report 10027544 (Version 2)
Quarter: 2014Q3

REPORT INFORMATION
  Report Type: Spontaneous
  Country: US (occurrence: US)
  Receive Date: 20140321
  Receipt Date: 20140813
  Transmission Date: 20150326
  Serious: Yes (Hospitalization, Other)
  Sender: FDA-Public Use
  Company Number: US-BAYER-2014-042554

PATIENT
  Age: 23 Year
  Sex: Female
  Weight: 63.49 kg

DRUGS (3)
  1. MIRENA [Suspect]
     Active Substance: LEVONORGESTREL
     Indication: CONTRACEPTION
     Dosage: 20 MCG/24HR, CONT
     Route: 015
     Dates: start: 20090720, end: 20120228
  2. AZITHROMYCIN [Concomitant]
     Active Substance: AZITHROMYCIN ANHYDROUS
     Dosage: 4 TABS X 1
     Route: 048
  3. ROCEPHIN [Concomitant]
     Active Substance: CEFTRIAXONE SODIUM
     Route: 030

REACTIONS (6)
  - Pain [None]
  - Emotional distress [None]
  - Post procedural haemorrhage [None]
  - Injury [None]
  - Uterine perforation [None]
  - Device failure [None]

NARRATIVE: CASE EVENT DATE: 20120221
